FAERS Safety Report 16370542 (Version 1)
Quarter: 2019Q2

REPORT INFORMATION
  Report Type: Spontaneous
  Country: ES (occurrence: ES)
  Receive Date: 20190530
  Receipt Date: 20190530
  Transmission Date: 20190711
  Serious: Yes (Hospitalization)
  Sender: FDA-Public Use
  Company Number: ES-AUROBINDO-AUR-APL-2019-029630

PATIENT

DRUGS (6)
  1. FUROSEMIDE. [Concomitant]
     Active Substance: FUROSEMIDE
     Indication: HYPERTENSION
     Dosage: 40 MILLIGRAM, ONCE A DAY
     Route: 048
     Dates: start: 2013
  2. LOSARTAN. [Concomitant]
     Active Substance: LOSARTAN
     Indication: HYPERTENSION
     Dosage: 50 MILLIGRAM, ONCE A DAY
     Route: 048
     Dates: start: 201506
  3. ALDOCUMAR [Interacting]
     Active Substance: WARFARIN SODIUM
     Indication: ATRIAL FIBRILLATION
     Dosage: 40 TABLETS
     Route: 048
     Dates: start: 2014, end: 20190130
  4. BISOPROLOL [Concomitant]
     Active Substance: BISOPROLOL
     Indication: ATRIAL FIBRILLATION
     Dosage: 1.25 MILLIGRAM, ONCE A DAY
     Route: 048
     Dates: start: 201606
  5. SERTRALINE [Interacting]
     Active Substance: SERTRALINE HYDROCHLORIDE
     Indication: ANXIETY
     Dosage: 25 MILLIGRAM, ONCE A DAY
     Route: 048
     Dates: start: 201806
  6. AMIODARONE [Suspect]
     Active Substance: AMIODARONE
     Indication: ATRIAL FIBRILLATION
     Dosage: 600 MILLIGRAM, ONCE A DAY
     Route: 048
     Dates: start: 201406

REACTIONS (2)
  - Anticoagulation drug level above therapeutic [Recovered/Resolved]
  - Ecchymosis [Recovered/Resolved]

NARRATIVE: CASE EVENT DATE: 20190130
